FAERS Safety Report 13634113 (Version 1)
Quarter: 2017Q2

REPORT INFORMATION
  Report Type: Spontaneous
  Country: DK (occurrence: DK)
  Receive Date: 20170609
  Receipt Date: 20170609
  Transmission Date: 20170830
  Serious: Yes (Hospitalization)
  Sender: FDA-Public Use
  Company Number: DK-ALKABELLO-2017AA001974

PATIENT
  Age: 16 Year
  Sex: Female
  Weight: 79 kg

DRUGS (2)
  1. GRAZAX [Suspect]
     Active Substance: PHLEUM PRATENSE POLLEN
     Indication: SEASONAL ALLERGY
     Route: 048
     Dates: start: 20170120, end: 20170410
  2. EUTHYROX [Concomitant]
     Active Substance: LEVOTHYROXINE SODIUM
     Indication: HYPOTHYROIDISM

REACTIONS (4)
  - Gastrooesophageal reflux disease [Recovering/Resolving]
  - Eosinophilic oesophagitis [Recovering/Resolving]
  - Oral pruritus [Recovering/Resolving]
  - Oesophageal pain [Recovering/Resolving]

NARRATIVE: CASE EVENT DATE: 20170120
